FAERS Safety Report 5262578-8 (Version None)
Quarter: 2007Q1

REPORT INFORMATION
  Report Type: 
  Country: None (occurrence: None)
  Receive Date: 20070309
  Receipt Date: 20070309
  Transmission Date: 20070707
  Serious: No
  Sender: FDA-Public Use
  Company Number: None

PATIENT
  Age: 45 Year
  Sex: Male
  Weight: 84 kg

DRUGS (9)
  1. PHENYTOIN [Suspect]
     Indication: CONVULSION PROPHYLAXIS
     Dosage: 300 MG Q DAY NG
     Route: 050
     Dates: start: 20070311, end: 20070315
  2. CLINDAMYCIN [Concomitant]
  3. VANCOMYCIN [Concomitant]
  4. MORPHINE [Concomitant]
  5. CARISOPRODOL [Concomitant]
  6. VICODIN [Concomitant]
  7. LORAZEPAM [Concomitant]
  8. ZANTAC [Concomitant]
  9. . [Concomitant]

REACTIONS (2)
  - HEPATIC FUNCTION ABNORMAL [None]
  - RASH ERYTHEMATOUS [None]
